FAERS Safety Report 7425525-6 (Version None)
Quarter: 2011Q2

REPORT INFORMATION
  Report Type: 
  Country: None (occurrence: None)
  Receive Date: 20110420
  Receipt Date: 20110411
  Transmission Date: 20111010
  Serious: Yes (Hospitalization)
  Sender: FDA-Public Use
  Company Number: US-B.I. PHARMACEUTICALS,INC./RIDGEFIELD-2011-BP-05913BP

PATIENT
  Sex: Male

DRUGS (17)
  1. TRILIPIX  DR [Concomitant]
     Dosage: 135 MG
  2. VITAMIN B-12 [Concomitant]
     Dosage: 1000 MG
  3. PRADAXA [Suspect]
     Indication: DRUG THERAPY CHANGED
  4. LISINOPRIL [Concomitant]
     Dosage: 20 MG
  5. LIPITOR [Concomitant]
     Dosage: 8 MG
  6. ISOSORBIDE MONER [Concomitant]
     Dosage: 30 MG
  7. ASPIRIN [Concomitant]
     Dosage: 81 MG
  8. VITAMIN D [Concomitant]
     Dosage: 800 MG
  9. MULTI-VITAMIN [Concomitant]
  10. STRESS/ZINC [Concomitant]
  11. GLYBURIDE [Concomitant]
     Dosage: 5 MG
  12. FUROSEMIDE [Concomitant]
     Dosage: 80 MG
  13. OMEPRAZOLE [Concomitant]
     Dosage: 20 MG
  14. BEE POLLEN [Concomitant]
     Dosage: 1000 MG
  15. HUMALOG [Concomitant]
  16. CALCIUM [Concomitant]
     Dosage: 1500 MG
  17. XALATAN [Concomitant]

REACTIONS (2)
  - ADVERSE DRUG REACTION [None]
  - DEHYDRATION [None]
